FAERS Safety Report 5107242-0 (Version None)
Quarter: 2006Q3

REPORT INFORMATION
  Report Type: 
  Country: None (occurrence: None)
  Receive Date: 20060913
  Receipt Date: 20060901
  Transmission Date: 20061208
  Serious: Yes (Hospitalization)
  Sender: FDA-Public Use
  Company Number: MEDI-0004774

PATIENT
  Age: 48 Year
  Sex: Male
  Weight: 89.5854 kg

DRUGS (13)
  1. ETHYOL [Suspect]
     Indication: CHEMOTHERAPY
     Dosage: 500 MG, 5 IN 5 D, SUBCUTANEOUS
     Route: 058
     Dates: start: 20060614, end: 20060619
  2. ETHYOL [Suspect]
     Indication: RADIOTHERAPY
     Dosage: 500 MG, 5 IN 5 D, SUBCUTANEOUS
     Route: 058
     Dates: start: 20060614, end: 20060619
  3. ETHYOL [Suspect]
     Indication: CHEMOTHERAPY
     Dosage: 500 MG, 5 IN 5 D, SUBCUTANEOUS
     Route: 058
     Dates: start: 20060621, end: 20060621
  4. ETHYOL [Suspect]
     Indication: RADIOTHERAPY
     Dosage: 500 MG, 5 IN 5 D, SUBCUTANEOUS
     Route: 058
     Dates: start: 20060621, end: 20060621
  5. ETHYOL [Suspect]
     Indication: CHEMOTHERAPY
     Dosage: 500 MG, 5 IN 5 D, SUBCUTANEOUS
     Route: 058
     Dates: start: 20060626, end: 20060626
  6. ETHYOL [Suspect]
     Indication: RADIOTHERAPY
     Dosage: 500 MG, 5 IN 5 D, SUBCUTANEOUS
     Route: 058
     Dates: start: 20060626, end: 20060626
  7. RADIATION THERAPY [Concomitant]
  8. CHEMOTHERAPY DRUG [Concomitant]
  9. ZOFRAN [Concomitant]
  10. ZANTAC [Concomitant]
  11. PEPCID [Concomitant]
  12. BENADRYL [Concomitant]
  13. CLARITIN [Concomitant]

REACTIONS (12)
  - CHILLS [None]
  - DERMATITIS ALLERGIC [None]
  - HEADACHE [None]
  - INJECTION SITE REACTION [None]
  - LETHARGY [None]
  - MALAISE [None]
  - NAUSEA [None]
  - PHARYNGOLARYNGEAL PAIN [None]
  - PYREXIA [None]
  - SHOCK [None]
  - SKIN WARM [None]
  - VOMITING [None]
